FAERS Safety Report 6184855-9 (Version None)
Quarter: 2009Q2

REPORT INFORMATION
  Report Type: 
  Country: None (occurrence: None)
  Receive Date: 20090508
  Receipt Date: 20090424
  Transmission Date: 20091009
  Serious: Yes (Death, Hospitalization, Other)
  Sender: FDA-Public Use
  Company Number: GB-GENENTECH-282603

PATIENT
  Age: 66 Year
  Sex: Female

DRUGS (10)
  1. AVASTIN [Suspect]
     Indication: METASTASES TO LIVER
     Dosage: UNK
     Route: 065
  2. AVASTIN [Suspect]
     Indication: METASTASES TO LUNG
  3. XELODA [Suspect]
     Indication: COLORECTAL CANCER METASTATIC
     Dosage: 1650 MG, BID
     Route: 048
     Dates: start: 20090119, end: 20090221
  4. OXALIPLATIN [Suspect]
     Indication: COLORECTAL CANCER METASTATIC
     Dosage: 200 MG, UNK
     Route: 042
     Dates: start: 20090119
  5. BUSCOPAN [Concomitant]
     Indication: DRUG USE FOR UNKNOWN INDICATION
     Dosage: UNK
  6. CEFUROXIME [Concomitant]
     Indication: DRUG USE FOR UNKNOWN INDICATION
     Dosage: UNK
  7. CIPROFLOXACIN [Concomitant]
     Indication: DRUG USE FOR UNKNOWN INDICATION
     Dosage: UNK
     Dates: start: 20090221, end: 20090301
  8. HALOPERIDOL [Concomitant]
     Indication: DRUG USE FOR UNKNOWN INDICATION
     Dosage: UNK
     Dates: start: 20090225, end: 20090301
  9. MORPHINE [Concomitant]
     Indication: DRUG USE FOR UNKNOWN INDICATION
     Dosage: UNK
  10. NEUPOGEN [Concomitant]
     Indication: DRUG USE FOR UNKNOWN INDICATION
     Dosage: UNK

REACTIONS (3)
  - COLITIS ISCHAEMIC [None]
  - DIARRHOEA [None]
  - MIGRAINE [None]
